FAERS Safety Report 6859503-2 (Version None)
Quarter: 2010Q3

REPORT INFORMATION
  Report Type: 
  Country: None (occurrence: None)
  Receive Date: 20100719
  Receipt Date: 20080301
  Transmission Date: 20110219
  Serious: No
  Sender: FDA-Public Use
  Company Number: US-PFIZER INC-2008019662

PATIENT
  Sex: Female
  Weight: 52.3 kg

DRUGS (9)
  1. CHANTIX [Suspect]
     Indication: SMOKING CESSATION THERAPY
     Dates: start: 20080301
  2. FLEXERIL [Concomitant]
  3. PERCOCET [Concomitant]
  4. MORPHINE [Concomitant]
  5. IBUPROFEN [Concomitant]
  6. PEPCID [Concomitant]
  7. WARFARIN SODIUM [Concomitant]
  8. LOVENOX [Concomitant]
  9. CIMETIDINE [Concomitant]

REACTIONS (1)
  - NAUSEA [None]
